FAERS Safety Report 6942262-2 (Version None)
Quarter: 2010Q3

REPORT INFORMATION
  Report Type: 
  Country: None (occurrence: None)
  Receive Date: 20100820
  Receipt Date: 20100805
  Transmission Date: 20110219
  Serious: Yes (Hospitalization)
  Sender: FDA-Public Use
  Company Number: 2010002862

PATIENT
  Age: 66 Year
  Sex: Female
  Weight: 66.4 kg

DRUGS (16)
  1. ERLOTINIB HYDROCHLORIDE [Suspect]
     Indication: PANCREATIC CARCINOMA
     Dosage: 100 MG, QD, ORAL
     Route: 048
     Dates: start: 20100701, end: 20100714
  2. GEMCITABINE [Suspect]
     Indication: PANCREATIC CARCINOMA
     Dosage: 1000 MG, DAYS 1, 8,  AND 15), INTRAVENOUS
     Route: 042
     Dates: start: 20100701, end: 20100708
  3. PACLITAXEL [Suspect]
     Indication: PANCREATIC CARCINOMA
     Dosage: 100 MG, DAYS 1, 8, AND 15, INTRAVENOUS
     Route: 042
     Dates: start: 20100701, end: 20100708
  4. METOPROLOL SUCCINATE [Concomitant]
  5. LOVASTATIN [Concomitant]
  6. DICLOFENAC SODIUM [Concomitant]
  7. IBUPROFEN [Concomitant]
  8. MIRALAX [Concomitant]
  9. AMLODIPINE [Concomitant]
  10. AMBIEN [Concomitant]
  11. OXYCODONE HCL [Concomitant]
  12. COMPAZINE [Concomitant]
  13. ONDANSETRON [Concomitant]
  14. ROBITUSSIN DM (ROBITUSSIN-DM) [Concomitant]
  15. ATIVAN [Concomitant]
  16. METOCLOPRAMIDE [Concomitant]

REACTIONS (1)
  - OPTIC NEUROPATHY [None]
